FAERS Safety Report 8401072-X (Version None)
Quarter: 2012Q2

REPORT INFORMATION
  Report Type: 
  Country: None (occurrence: None)
  Receive Date: 20120525
  Receipt Date: 20120510
  Transmission Date: 20120825
  Serious: Yes (Life-Threatening, Hospitalization, Other)
  Sender: FDA-Public Use
  Company Number: 2012P1018204

PATIENT
  Age: 63 Year
  Sex: Female
  Weight: 64.8644 kg

DRUGS (7)
  1. CARVEDILOL [Concomitant]
  2. BIFONAZOLE [Concomitant]
  3. VANCOMYCIN [Concomitant]
  4. CEFTAZIDIME [Suspect]
     Indication: PROPHYLAXIS
     Dosage: 1 GM, BID, IV
     Route: 042
     Dates: start: 20120327, end: 20120410
  5. DECORT [Concomitant]
  6. HYDROCHLORIDE [Concomitant]
  7. FUROSEMIDE [Concomitant]

REACTIONS (6)
  - PLEURAL EFFUSION [None]
  - WOUND INFECTION [None]
  - CARDIAC TAMPONADE [None]
  - HAEMOTHORAX [None]
  - PROCEDURAL HAEMORRHAGE [None]
  - PLATELET COUNT DECREASED [None]
